FAERS Safety Report 5218960-8 (Version None)
Quarter: 2007Q1

REPORT INFORMATION
  Report Type: 
  Country: None (occurrence: None)
  Receive Date: 20070125
  Receipt Date: 20070122
  Transmission Date: 20070707
  Serious: Yes (Hospitalization)
  Sender: FDA-Public Use
  Company Number: DE-BRISTOL-MYERS SQUIBB COMPANY-13653506

PATIENT
  Age: 58 Year

DRUGS (1)
  1. CISPLATIN [Suspect]
     Dates: start: 20050506

REACTIONS (2)
  - PARANEOPLASTIC SYNDROME [None]
  - PULMONARY EMBOLISM [None]
